FAERS Safety Report 24630171 (Version 1)
Quarter: 2024Q4

REPORT INFORMATION
  Report Type: Spontaneous
  Country: PL (occurrence: PL)
  Receive Date: 20241118
  Receipt Date: 20241118
  Transmission Date: 20250114
  Serious: Yes (Other)
  Sender: NOVARTIS
  Company Number: PL-ELI_LILLY_AND_COMPANY-PL202410017042

PATIENT
  Age: 43 Year
  Sex: Female

DRUGS (4)
  1. LETROZOLE [Suspect]
     Active Substance: LETROZOLE
     Indication: HER2 negative breast cancer
     Dosage: UNK
     Route: 065
     Dates: start: 202104, end: 202305
  2. ABEMACICLIB [Suspect]
     Active Substance: ABEMACICLIB
     Indication: HER2 negative breast cancer
     Dosage: UNK
     Route: 065
     Dates: start: 202104, end: 202305
  3. ABEMACICLIB [Suspect]
     Active Substance: ABEMACICLIB
     Dosage: UNK
     Route: 065
     Dates: end: 202406
  4. ABEMACICLIB [Suspect]
     Active Substance: ABEMACICLIB
     Dosage: 200 MG, QD
     Route: 065

REACTIONS (3)
  - Hepatotoxicity [Recovered/Resolved]
  - Hepatotoxicity [Recovered/Resolved]
  - Therapy partial responder [Unknown]

NARRATIVE: CASE EVENT DATE: 20230501
